FAERS Safety Report 9887275 (Version 2)
Quarter: 2014Q1

REPORT INFORMATION
  Report Type: Spontaneous
  Country: JP (occurrence: JP)
  Receive Date: 20140211
  Receipt Date: 20140211
  Transmission Date: 20141002
  Serious: Yes (Life-Threatening, Hospitalization, Other)
  Sender: FDA-Public Use
  Company Number: JP-PFIZER INC-2014014494

PATIENT
  Age: 68 Year
  Sex: Male

DRUGS (11)
  1. ANCARON [Suspect]
     Indication: ATRIAL FIBRILLATION
     Dosage: 200 MG, DAILY
     Route: 048
     Dates: start: 20081122, end: 201111
  2. ANCARON [Suspect]
     Indication: CARDIAC PACEMAKER INSERTION
     Dosage: 200 MG, DAILY
     Route: 048
     Dates: start: 20120501, end: 20120709
  3. ANCARON [Suspect]
     Dosage: 100 MG, ONCE DAILY
     Route: 048
     Dates: start: 20121129, end: 20131226
  4. ANCARON [Suspect]
     Dosage: UNK
     Route: 042
  5. AMLODIPINE BESILATE [Concomitant]
     Dosage: UNK
  6. MAINTATE [Concomitant]
     Dosage: UNK
  7. THYRADIN-S [Concomitant]
     Dosage: UNK
  8. PARIET [Concomitant]
     Dosage: UNK
  9. ARICEPT [Concomitant]
     Dosage: UNK
  10. MEMARY [Concomitant]
     Dosage: UNK
  11. L-CARTIN [Concomitant]
     Dosage: UNK

REACTIONS (4)
  - Interstitial lung disease [Recovered/Resolved with Sequelae]
  - Rhabdomyolysis [Unknown]
  - Sick sinus syndrome [Not Recovered/Not Resolved]
  - Hypothyroidism [Unknown]
